FAERS Safety Report 26130575 (Version 1)
Quarter: 2025Q4

REPORT INFORMATION
  Report Type: Spontaneous
  Country: US (occurrence: None)
  Receive Date: 20251205
  Receipt Date: 20251205
  Transmission Date: 20260118
  Serious: No
  Sender: FDA-CTU
  Company Number: None

PATIENT
  Sex: Female

DRUGS (3)
  1. VYNDAMAX [Suspect]
     Active Substance: TAFAMIDIS
     Indication: Cardiomyopathy
     Dosage: TAKE 1 CAPSULE BY MOUTH DAILY
     Route: 048
     Dates: start: 20251016
  2. BUMETANIDE TAB 1MG [Concomitant]
  3. SCEMBLIX [Concomitant]
     Active Substance: ASCIMINIB HYDROCHLORIDE

REACTIONS (3)
  - Pulmonary oedema [None]
  - Fatigue [None]
  - Product use complaint [None]
